FAERS Safety Report 11330379 (Version 5)
Quarter: 2018Q2

REPORT INFORMATION
  Report Type: Report from Study
  Country: US (occurrence: US)
  Receive Date: 20150803
  Receipt Date: 20180608
  Transmission Date: 20180711
  Serious: Yes (Life-Threatening, Hospitalization)
  Sender: FDA-Public Use
  Company Number: US-JNJFOC-20150722695

PATIENT
  Age: 73 Year
  Sex: Female
  Weight: 76.2 kg

DRUGS (4)
  1. USTEKINUMAB [Suspect]
     Active Substance: USTEKINUMAB
     Indication: PSORIASIS
     Route: 058
     Dates: start: 201408
  2. INFLIXIMAB [Concomitant]
     Active Substance: INFLIXIMAB
     Route: 065
     Dates: start: 201008, end: 201010
  3. USTEKINUMAB [Suspect]
     Active Substance: USTEKINUMAB
     Indication: PSORIASIS
     Route: 058
     Dates: start: 201303, end: 201404
  4. INFLIXIMAB [Concomitant]
     Active Substance: INFLIXIMAB
     Route: 065
     Dates: start: 201406, end: 201406

REACTIONS (2)
  - Bronchioloalveolar carcinoma [Recovered/Resolved with Sequelae]
  - Cerebrovascular accident [Recovered/Resolved with Sequelae]

NARRATIVE: CASE EVENT DATE: 20150714
